FAERS Safety Report 18054659 (Version 1)
Quarter: 2020Q3

REPORT INFORMATION
  Report Type: Spontaneous
  Country: US (occurrence: US)
  Receive Date: 20200722
  Receipt Date: 20200722
  Transmission Date: 20201103
  Serious: No
  Sender: FDA-Public Use
  Company Number: US-SA-2020SA187816

PATIENT

DRUGS (8)
  1. HYDROXYZINE HCL [Concomitant]
     Active Substance: HYDROXYZINE HYDROCHLORIDE
  2. DUPIXENT [Suspect]
     Active Substance: DUPILUMAB
     Indication: DERMATITIS ATOPIC
     Dosage: 2 DF, 1X
     Route: 058
     Dates: start: 202005
  3. LISINOPRIL. [Concomitant]
     Active Substance: LISINOPRIL
  4. BENADRYL [Concomitant]
     Active Substance: DIPHENHYDRAMINE HYDROCHLORIDE
  5. ADVIL [IBUPROFEN] [Concomitant]
     Active Substance: IBUPROFEN
  6. TRIAMCINOLONE ACETONIDE. [Concomitant]
     Active Substance: TRIAMCINOLONE ACETONIDE
  7. VASELINE [PARAFFIN] [Concomitant]
     Active Substance: PARAFFIN
  8. ZYRTEC?D 12HR [Concomitant]

REACTIONS (1)
  - Product use issue [Unknown]

NARRATIVE: CASE EVENT DATE: 202005
